FAERS Safety Report 7791324-9 (Version None)
Quarter: 2011Q4

REPORT INFORMATION
  Report Type: 
  Country: None (occurrence: None)
  Receive Date: 20111003
  Receipt Date: 20110920
  Transmission Date: 20120403
  Serious: No
  Sender: FDA-Public Use
  Company Number: US-BIOGENIDEC-2011BI036233

PATIENT
  Age: 37 Year
  Sex: Male

DRUGS (2)
  1. AVONEX [Suspect]
     Indication: MULTIPLE SCLEROSIS
     Route: 030
     Dates: start: 20110919
  2. BACLOFEN [Concomitant]
     Indication: NERVE INJURY
     Dates: start: 20090101

REACTIONS (6)
  - MOVEMENT DISORDER [None]
  - VOMITING [None]
  - VERTIGO [None]
  - HYPERHIDROSIS [None]
  - MUSCLE SPASMS [None]
  - FEELING OF BODY TEMPERATURE CHANGE [None]
